FAERS Safety Report 7303410-8 (Version None)
Quarter: 2011Q1

REPORT INFORMATION
  Report Type: 
  Country: None (occurrence: None)
  Receive Date: 20110221
  Receipt Date: 20110208
  Transmission Date: 20110831
  Serious: Yes (Hospitalization)
  Sender: FDA-Public Use
  Company Number: US-ELI_LILLY_AND_COMPANY-US201010006617

PATIENT
  Sex: Female

DRUGS (14)
  1. POTASSIUM [Concomitant]
  2. ASPIRIN [Concomitant]
  3. MULTIVITAMIN [Concomitant]
  4. FORTEO [Suspect]
     Dosage: 20 UG, DAILY (1/D)
     Dates: start: 20100122, end: 20101005
  5. FUROSEMIDE [Concomitant]
  6. SIMVASTATIN [Concomitant]
  7. CLONAZEPAM [Concomitant]
  8. XANAX [Concomitant]
  9. SEREVENT [Concomitant]
  10. CALCIUM [Concomitant]
     Dosage: UNK, UNKNOWN
     Route: 065
  11. VITAMIN D [Concomitant]
  12. FORTEO [Suspect]
     Dosage: 20 UG, DAILY (1/D)
     Dates: start: 20101019
  13. CALCIUM [Concomitant]
     Dosage: UNK, UNKNOWN
     Route: 065
  14. SPIRIVA [Concomitant]

REACTIONS (2)
  - BLOOD CALCIUM INCREASED [None]
  - TREMOR [None]
